FAERS Safety Report 10732676 (Version 1)
Quarter: 2015Q1

REPORT INFORMATION
  Report Type: Spontaneous
  Country: US (occurrence: None)
  Receive Date: 20150120
  Receipt Date: 20150120
  Transmission Date: 20150721
  Serious: Yes (Other)
  Sender: FDA-Public Use
  Company Number: INT_00633_2015

PATIENT
  Age: 64 Year
  Sex: Female

DRUGS (3)
  1. CISPLATIN (HQ SPECIALTY) [Suspect]
     Active Substance: CISPLATIN
     Indication: CHOLANGIOCARCINOMA
     Dosage: 25 MG/M2, INTRAVENOUS (NOT OTHERWISE SPECIFIED)?
     Route: 042
  2. OXALIPLATIN. [Suspect]
     Active Substance: OXALIPLATIN
     Indication: CHOLANGIOCARCINOMA
     Dosage: 100 MG/M2 FOR 1 CYCLE INTRAVENOUS (NOT OTHERWISE SPECIFIED)?
     Route: 042
  3. GEMCITABINE [Suspect]
     Active Substance: GEMCITABINE\GEMCITABINE HYDROCHLORIDE
     Indication: CHOLANGIOCARCINOMA
     Dosage: 1000 MG/M2 FOR 2 CYCLES INTRAVENOUS (NOT OTHERWISE SPECIFIED)?
     Route: 042

REACTIONS (10)
  - Carotid artery dissection [None]
  - Anaemia [None]
  - Thrombocytopenia [None]
  - Chronic kidney disease [None]
  - Haemodialysis [None]
  - Blindness [None]
  - Retinal haemorrhage [None]
  - Retinal exudates [None]
  - Carotid artery stenosis [None]
  - Arteriosclerotic retinopathy [None]
